FAERS Safety Report 15901623 (Version 3)
Quarter: 2019Q2

REPORT INFORMATION
  Report Type: Report from Study
  Country: US (occurrence: US)
  Receive Date: 20190201
  Receipt Date: 20190404
  Transmission Date: 20190711
  Serious: Yes (Death, Hospitalization, Other)
  Sender: FDA-Public Use
  Company Number: US-ADAMAS PHARMA, LLC-2018ADA03096

PATIENT
  Age: 87 Year
  Sex: Female
  Weight: 56.69 kg

DRUGS (27)
  1. ACETAMINOPHEN. [Concomitant]
     Active Substance: ACETAMINOPHEN
     Route: 048
  2. GABAPENTIN. [Concomitant]
     Active Substance: GABAPENTIN
     Dosage: 100 MG, 1X/DAY IN THE MORNING
     Route: 048
  3. MAALOX MAX [Concomitant]
     Active Substance: ALUMINUM HYDROXIDE\DIMETHICONE\MAGNESIUM HYDROXIDE
  4. BUSPIRONE [Concomitant]
     Active Substance: BUSPIRONE HYDROCHLORIDE
     Route: 048
  5. CALCIUM CARBONATE. [Concomitant]
     Active Substance: CALCIUM CARBONATE
  6. TRAMADOL HCL [Concomitant]
     Active Substance: TRAMADOL HYDROCHLORIDE
     Dosage: 50 MG, 4X/DAY AS NEEDED
     Route: 048
  7. UNSPECIFIED LEVODOPA-BASED THERAPY [Concomitant]
  8. GOCOVRI [Suspect]
     Active Substance: AMANTADINE
     Dosage: 274 MG, 1X/DAY AT BEDTIME
     Route: 048
     Dates: start: 20181212
  9. ACETAMINOPHEN. [Concomitant]
     Active Substance: ACETAMINOPHEN
  10. LEVOTHYROXINE. [Concomitant]
     Active Substance: LEVOTHYROXINE
     Route: 048
  11. QUETIAPINE. [Concomitant]
     Active Substance: QUETIAPINE
     Dosage: 12.5 MG, 2X/DAY
  12. GOCOVRI [Suspect]
     Active Substance: AMANTADINE
     Indication: DYSKINESIA
     Dosage: 137 MG, 1X/DAY AT BEDTIME
     Route: 048
     Dates: start: 20181204, end: 20181210
  13. ATORVASTATIN [Concomitant]
     Active Substance: ATORVASTATIN
     Dosage: 20 MG, 1X/DAY IN THE EVENING
     Route: 048
  14. GABAPENTIN. [Concomitant]
     Active Substance: GABAPENTIN
     Dosage: 200 MG, 1X/DAY IN THE EVENING
     Route: 048
  15. LOPERAMIDE [Concomitant]
     Active Substance: LOPERAMIDE
  16. OMEPRAZOLE. [Concomitant]
     Active Substance: OMEPRAZOLE
     Route: 048
  17. PROBIOTIC [Concomitant]
     Active Substance: PROBIOTICS NOS
     Route: 048
  18. TROSPIUM CHLORIDE. [Concomitant]
     Active Substance: TROSPIUM CHLORIDE
     Dosage: 20 MG, 1X/DAY AT BEDTIME
     Route: 048
  19. ASPIRIN EC [Concomitant]
     Active Substance: ASPIRIN
     Route: 048
  20. VITAMINS NOS [Concomitant]
     Active Substance: VITAMINS
  21. LOSARTAN POTASSIUM. [Concomitant]
     Active Substance: LOSARTAN POTASSIUM
     Route: 048
  22. MELOXICAM. [Concomitant]
     Active Substance: MELOXICAM
     Dosage: 7.5 MG, 1X/DAY AS NEEDED
     Route: 048
  23. ONDANSETRON [Concomitant]
     Active Substance: ONDANSETRON
     Route: 048
  24. AMLODIPINE [Concomitant]
     Active Substance: AMLODIPINE BESYLATE
     Dosage: 10 MG, 1X/DAY
     Route: 048
  25. MULTI-VITAMIN (ONE-A-DAY VITACRAVE) [Concomitant]
     Route: 048
  26. VENLAFAXINE [Concomitant]
     Active Substance: VENLAFAXINE HYDROCHLORIDE
     Dosage: 225 MG, 1X/DAY
     Route: 048
  27. PROPRANOLOL ER [Concomitant]
     Active Substance: PROPRANOLOL HYDROCHLORIDE
     Route: 048

REACTIONS (10)
  - Postoperative delirium [Recovering/Resolving]
  - Gastrostomy [Recovering/Resolving]
  - Failure to thrive [Not Recovered/Not Resolved]
  - Dysphagia [Not Recovered/Not Resolved]
  - Small intestinal obstruction [Recovering/Resolving]
  - Death [Fatal]
  - Small intestinal resection [Recovering/Resolving]
  - Intestinal anastomosis [Recovering/Resolving]
  - Hospice care [Not Recovered/Not Resolved]
  - Pneumonia [Unknown]

NARRATIVE: CASE EVENT DATE: 20181213
